FAERS Safety Report 8839914 (Version 1)
Quarter: 2012Q4

REPORT INFORMATION
  Report Type: Spontaneous
  Country: GB (occurrence: None)
  Receive Date: 20121011
  Receipt Date: 20121011
  Transmission Date: 20130627
  Serious: Yes (Hospitalization)
  Sender: FDA-Public Use
  Company Number: IMP_06009_2012

PATIENT
  Age: 52 Year
  Sex: Female

DRUGS (1)
  1. CABERGOLINE [Suspect]
     Indication: PITUITARY TUMOUR
     Dosage: DF

REACTIONS (3)
  - Tumour haemorrhage [None]
  - Depressed level of consciousness [None]
  - Pituitary haemorrhage [None]
